FAERS Safety Report 4871278-5 (Version None)
Quarter: 2005Q4

REPORT INFORMATION
  Report Type: 
  Country: None (occurrence: None)
  Receive Date: 20051229
  Receipt Date: 20051216
  Transmission Date: 20060501
  Serious: Yes (Other)
  Sender: FDA-Public Use
  Company Number: 2005170354

PATIENT
  Sex: Male
  Weight: 74.8435 kg

DRUGS (4)
  1. LIPITOR [Suspect]
     Indication: BLOOD CHOLESTEROL INCREASED
     Dosage: 10 MG (10 MG, 1 IN 1 D), ORAL
     Route: 048
     Dates: start: 19900101
  2. ASPIRIN [Concomitant]
  3. PRINIVIL [Concomitant]
  4. LOPRESSOR [Concomitant]

REACTIONS (3)
  - ABASIA [None]
  - CORONARY ARTERY OCCLUSION [None]
  - CORONARY ARTERY SURGERY [None]
